FAERS Safety Report 12216278 (Version 1)
Quarter: 2016Q1

REPORT INFORMATION
  Report Type: Report from Study
  Country: US (occurrence: US)
  Receive Date: 20160329
  Receipt Date: 20160329
  Transmission Date: 20160526
  Serious: Yes (Other)
  Sender: FDA-Public Use
  Company Number: US-AMGEN-USASL2016036280

PATIENT
  Age: 59 Year
  Sex: Female

DRUGS (1)
  1. ENBREL [Suspect]
     Active Substance: ETANERCEPT
     Indication: RHEUMATOID ARTHRITIS
     Dosage: 50 MG, QWK
     Route: 065
     Dates: start: 1996

REACTIONS (7)
  - Corrective lens user [Unknown]
  - Musculoskeletal disorder [Unknown]
  - Condition aggravated [Unknown]
  - Arthrodesis [Unknown]
  - Pain in extremity [Unknown]
  - Arthralgia [Unknown]
  - Arthropathy [Unknown]

NARRATIVE: CASE EVENT DATE: 2011
